FAERS Safety Report 6822405-1 (Version None)
Quarter: 2010Q3

REPORT INFORMATION
  Report Type: 
  Country: None (occurrence: None)
  Receive Date: 20100708
  Receipt Date: 20100630
  Transmission Date: 20110219
  Serious: Yes (Hospitalization)
  Sender: FDA-Public Use
  Company Number: PHHY2010BR14531

PATIENT
  Sex: Male

DRUGS (1)
  1. METHERGINE [Suspect]

REACTIONS (2)
  - DRUG EXPOSURE VIA BREAST MILK [None]
  - RESPIRATORY DISTRESS [None]
